FAERS Safety Report 26094234 (Version 1)
Quarter: 2025Q4

REPORT INFORMATION
  Report Type: Report from Study
  Country: US (occurrence: US)
  Receive Date: 20251126
  Receipt Date: 20251126
  Transmission Date: 20260118
  Serious: Yes (Hospitalization, Other)
  Sender: ALNYLAM PHARMACEUTICALS
  Company Number: US-ALNYLAM PHARMACEUTICALS, INC.-ALN-2025-007439

PATIENT
  Age: 84 Year

DRUGS (2)
  1. AMVUTTRA [Suspect]
     Active Substance: VUTRISIRAN
     Indication: Acquired ATTR amyloidosis
     Dosage: UNK
     Route: 065
  2. AMVUTTRA [Suspect]
     Active Substance: VUTRISIRAN
     Dosage: UNK
     Route: 065

REACTIONS (8)
  - Post procedural complication [Unknown]
  - Cardiac failure congestive [Unknown]
  - Shoulder arthroplasty [Unknown]
  - Pulmonary congestion [Unknown]
  - Diarrhoea [Recovering/Resolving]
  - Tachycardia [Unknown]
  - Cellulitis [Unknown]
  - Anxiety [Unknown]
